FAERS Safety Report 5685315-1 (Version None)
Quarter: 2008Q1

REPORT INFORMATION
  Report Type: 
  Country: None (occurrence: None)
  Receive Date: 20080328
  Receipt Date: 20080317
  Transmission Date: 20080703
  Serious: Yes (Hospitalization, Other)
  Sender: FDA-Public Use
  Company Number: DE-PFIZER INC-2008024537

PATIENT
  Sex: Male

DRUGS (48)
  1. DOXAZOSIN MESYLATE [Suspect]
     Dosage: TEXT:AVERAGED 7.4 MG DAILY
     Route: 048
     Dates: start: 20070812, end: 20070824
  2. PANTOZOL [Suspect]
     Dosage: DAILY DOSE:40MG
     Route: 042
     Dates: start: 20070815, end: 20070901
  3. METAMIZOLE [Suspect]
     Dosage: DAILY DOSE:1000MG
     Route: 042
     Dates: start: 20070725, end: 20070725
  4. METAMIZOLE [Suspect]
     Dosage: TEXT:ONE VIAL
     Route: 042
     Dates: start: 20070807, end: 20070807
  5. METAMIZOLE [Suspect]
     Dosage: TEXT:AVERAGE 108 DROPS DAILY
     Route: 048
     Dates: start: 20070807, end: 20070816
  6. ACIMETHIN [Suspect]
     Dosage: DAILY DOSE:1500MG
     Route: 048
     Dates: start: 20070810, end: 20070820
  7. CLAFORAN [Suspect]
     Dosage: DAILY DOSE:6000MG
     Route: 042
     Dates: start: 20070811, end: 20070831
  8. ALLOPURINOL [Concomitant]
     Dates: start: 20070725, end: 20070831
  9. ACETYLSALICYLIC ACID SRT [Concomitant]
     Dates: start: 20070725
  10. PLAVIX [Concomitant]
     Dates: start: 20070725
  11. BELOC ZOK [Concomitant]
     Dates: start: 20070724, end: 20070809
  12. BELOC ZOK [Concomitant]
     Dates: start: 20070810, end: 20070813
  13. BELOC ZOK [Concomitant]
     Dates: start: 20070810, end: 20070810
  14. FELODIPINE [Concomitant]
     Dates: start: 20070725, end: 20070805
  15. FELODIPINE [Concomitant]
     Dates: start: 20070806, end: 20070806
  16. FELODIPINE [Concomitant]
     Dates: start: 20070807
  17. SIMVASTATIN [Concomitant]
     Dates: start: 20070725, end: 20070831
  18. ALNA [Concomitant]
     Dates: start: 20070725, end: 20070901
  19. LASIX [Concomitant]
     Dates: start: 20070725, end: 20070901
  20. OMNIFLORA [Concomitant]
     Dates: start: 20070821, end: 20070821
  21. ZYVOX [Concomitant]
     Dates: start: 20070725, end: 20070810
  22. RIFAMPICIN [Concomitant]
     Dates: start: 20070727, end: 20070810
  23. FRAXIPARIN [Concomitant]
     Dates: start: 20070731, end: 20070801
  24. FRAGMIN [Concomitant]
     Dates: start: 20070802
  25. CIPRO [Concomitant]
     Dates: start: 20070806, end: 20070808
  26. TRAMADOL HCL [Concomitant]
     Dates: start: 20070807, end: 20070808
  27. SPASMEX [Concomitant]
     Dates: start: 20070807, end: 20070817
  28. SPASMEX [Concomitant]
     Dates: start: 20070818, end: 20070820
  29. SPASMEX [Concomitant]
     Dates: start: 20070821, end: 20070821
  30. ZOFRAN [Concomitant]
     Dates: start: 20070807, end: 20070807
  31. ZOFRAN [Concomitant]
     Dates: start: 20070810, end: 20070810
  32. BUSCOPAN [Concomitant]
     Dates: start: 20070807, end: 20070807
  33. ACETAMINOPHEN [Concomitant]
     Dates: start: 20070807, end: 20070807
  34. DIPIDOLOR [Concomitant]
     Dates: start: 20070807, end: 20070807
  35. ELECTROLYTE SOLUTIONS [Concomitant]
     Dates: start: 20070807, end: 20070808
  36. ELECTROLYTE SOLUTIONS [Concomitant]
     Dates: start: 20070817
  37. VALERIANA OFFICINALIS [Concomitant]
     Dates: start: 20070729, end: 20070731
  38. VALERIANA OFFICINALIS [Concomitant]
     Dates: start: 20070806, end: 20070806
  39. ACETAMINOPHEN [Concomitant]
     Dates: start: 20070806, end: 20070807
  40. ZOPICLONE [Concomitant]
     Dates: start: 20070806, end: 20070806
  41. ZOPICLONE [Concomitant]
     Dates: start: 20070808
  42. LEFAX [Concomitant]
     Dates: start: 20070805, end: 20070806
  43. CEFOTAXIME [Concomitant]
     Dates: start: 20070811, end: 20070831
  44. KALINOR-BRAUSETABLETTEN [Concomitant]
     Dates: start: 20070812, end: 20070821
  45. METOCLOPRAMIDE HYDROCHLORIDE [Concomitant]
     Dates: start: 20070809, end: 20070816
  46. BENZYLPENICILLIN SODIUM [Concomitant]
  47. ROCEPHIN [Concomitant]
     Dates: start: 20070808, end: 20070810
  48. RED BLOOD CELLS [Concomitant]
     Dates: start: 20070814, end: 20070814

REACTIONS (1)
  - AGRANULOCYTOSIS [None]
